FAERS Safety Report 4426927-2 (Version None)
Quarter: 2004Q3

REPORT INFORMATION
  Report Type: 
  Country: None (occurrence: None)
  Receive Date: 20040811
  Receipt Date: 20040729
  Transmission Date: 20050211
  Serious: Yes (Death, Hospitalization, Other)
  Sender: FDA-Public Use
  Company Number: 2004039727

PATIENT
  Age: 68 Year
  Sex: Female
  Weight: 75.2971 kg

DRUGS (5)
  1. ACCUPRIL [Suspect]
     Indication: ILL-DEFINED DISORDER
     Dosage: 20 MG (1 IN 1 D), ORAL
     Route: 048
  2. ALL OTHER THERAPEUTIC PRODUCTS (ALL OTHER THERAPEUTIC PRODUCTS) [Suspect]
     Indication: OVARIAN CANCER
     Dosage: 175 MG/M2 (1 IN 3 WK), INTRAVENOUS
     Route: 042
     Dates: start: 20040115
  3. CARBOPLATIN [Suspect]
     Indication: OVARIAN CANCER
     Dosage: (1 IN 3 WK), INTRAVENOUS
     Route: 036
     Dates: start: 20040115
  4. ALDORIL (HYDROCHLOROTHIAZIDE, METHYLDOPA) [Concomitant]
  5. ONDANSETRON HCL [Concomitant]

REACTIONS (13)
  - ASTHENIA [None]
  - CELLULITIS [None]
  - CONDITION AGGRAVATED [None]
  - DEHYDRATION [None]
  - HYPOKALAEMIA [None]
  - HYPONATRAEMIA [None]
  - LOSS OF CONSCIOUSNESS [None]
  - MALIGNANT NEOPLASM PROGRESSION [None]
  - NAUSEA [None]
  - NEUROPATHY [None]
  - OVARIAN CANCER [None]
  - SINUSITIS [None]
  - VOMITING [None]
